FAERS Safety Report 12183402 (Version 1)
Quarter: 2016Q1

REPORT INFORMATION
  Report Type: Spontaneous
  Country: US (occurrence: None)
  Receive Date: 20160315
  Receipt Date: 20160315
  Transmission Date: 20160526
  Serious: No
  Sender: FDA-Public Use
  Company Number: None

PATIENT
  Age: 57 Year
  Sex: Female

DRUGS (2)
  1. ALIMTA [Suspect]
     Active Substance: PEMETREXED DISODIUM
     Dates: start: 20160210
  2. AVASTIN [Suspect]
     Active Substance: BEVACIZUMAB

REACTIONS (3)
  - Sluggishness [None]
  - Asthenia [None]
  - Hypersomnia [None]
